FAERS Safety Report 5985308-0 (Version None)
Quarter: 2008Q4

REPORT INFORMATION
  Report Type: 
  Country: None (occurrence: None)
  Receive Date: 20081203
  Receipt Date: 20081119
  Transmission Date: 20090506
  Serious: Yes (Hospitalization)
  Sender: FDA-Public Use
  Company Number: 2008098427

PATIENT
  Age: 50 Year
  Sex: Male
  Weight: 64 kg

DRUGS (5)
  1. FRAGMIN [Suspect]
     Indication: THROMBOSIS PROPHYLAXIS
     Dosage: 10000 I.U. (10000 I.U., DAILY),  SUBCUTANEOUS
     Route: 058
     Dates: start: 20080904, end: 20080922
  2. KEPPRA [Suspect]
     Indication: EPILEPSY
     Dosage: 1500 MG (500 MG, 3 IN 1 D), ORAL
     Route: 048
     Dates: start: 20080819, end: 20080922
  3. MIRTAZAPINE [Suspect]
     Indication: DEPRESSION
     Dosage: 30 MG (30 MG, DAILY), ORAL
     Route: 048
     Dates: start: 20080908
  4. TEMOZOLOMIDE [Suspect]
     Indication: GLIOBLASTOMA MULTIFORME
     Dosage: 125 MG (DAILY), ORAL, 80 MG (DAILY), ORAL
     Route: 048
     Dates: start: 20080909, end: 20080925
  5. TEMOZOLOMIDE [Suspect]
     Indication: GLIOBLASTOMA MULTIFORME
     Dosage: 125 MG (DAILY), ORAL, 80 MG (DAILY), ORAL
     Route: 048
     Dates: start: 20081017, end: 20081021

REACTIONS (7)
  - ALANINE AMINOTRANSFERASE INCREASED [None]
  - ASPARTATE AMINOTRANSFERASE INCREASED [None]
  - BLOOD ALKALINE PHOSPHATASE INCREASED [None]
  - BLOOD LACTATE DEHYDROGENASE INCREASED [None]
  - CHOLESTASIS [None]
  - GAMMA-GLUTAMYLTRANSFERASE INCREASED [None]
  - HEPATIC STEATOSIS [None]
